FAERS Safety Report 5621093-X (Version None)
Quarter: 2008Q1

REPORT INFORMATION
  Report Type: 
  Country: None (occurrence: None)
  Receive Date: 20080114
  Receipt Date: 20061223
  Transmission Date: 20080703
  Serious: Yes (Hospitalization)
  Sender: FDA-Public Use
  Company Number: A03200700088

PATIENT
  Age: 79 Year
  Sex: Female
  Weight: 65.7716 kg

DRUGS (6)
  1. PLAVIX [Suspect]
     Indication: CEREBROVASCULAR ACCIDENT
     Dosage: 75 MG QD-ORAL
     Route: 048
     Dates: start: 19990101, end: 20060928
  2. AMLODIPINE BESILATE [Concomitant]
  3. INSULIN [Concomitant]
  4. TRIAMTERENE [Concomitant]
  5. LOVASTATIN [Concomitant]
  6. PARACETAMOL [Concomitant]

REACTIONS (2)
  - HAEMOGLOBIN DECREASED [None]
  - RECTAL HAEMORRHAGE [None]
